FAERS Safety Report 22361572 (Version 1)
Quarter: 2023Q2

REPORT INFORMATION
  Report Type: Spontaneous
  Country: CN (occurrence: None)
  Receive Date: 20230524
  Receipt Date: 20230524
  Transmission Date: 20230722
  Serious: Yes (Other)
  Sender: FDA-Public Use
  Company Number: CN-Eisai Medical Research-EC-2023-140277

PATIENT
  Age: 74 Year
  Sex: Male
  Weight: 61 kg

DRUGS (2)
  1. LENVIMA [Suspect]
     Active Substance: LENVATINIB
     Indication: Hepatic cancer
     Route: 048
     Dates: start: 20230412, end: 20230504
  2. NITRENDIPINE [Concomitant]
     Active Substance: NITRENDIPINE
     Indication: Hypertension
     Route: 048
     Dates: start: 20200212

REACTIONS (4)
  - Palpitations [Recovering/Resolving]
  - Chest discomfort [Recovering/Resolving]
  - Haemoptysis [Unknown]
  - Epistaxis [Recovered/Resolved]

NARRATIVE: CASE EVENT DATE: 20230420
